FAERS Safety Report 8852830 (Version 1)
Quarter: 2012Q4

REPORT INFORMATION
  Report Type: 
  Country: RU (occurrence: RU)
  Receive Date: 20121022
  Receipt Date: 20121022
  Transmission Date: 20130627
  Serious: Yes (Other)
  Sender: FDA-Public Use
  Company Number: RU-ALEXION PHARMACEUTICALS INC.-A201201959

PATIENT
  Age: 9 Year
  Sex: Female

DRUGS (3)
  1. SOLIRIS 300MG [Suspect]
     Indication: HAEMOLYTIC URAEMIC SYNDROME
     Dosage: 600 mg, qw
     Route: 042
     Dates: start: 20120630, end: 20120716
  2. SOLIRIS 300MG [Suspect]
     Dosage: 600 mg, q2w
     Route: 042
     Dates: start: 20120728, end: 20120908
  3. SOLIRIS 300MG [Suspect]
     Dosage: 900 mg, q2w
     Route: 042
     Dates: start: 20120922

REACTIONS (2)
  - Device related infection [Recovered/Resolved]
  - Upper respiratory tract infection [Recovered/Resolved]
